FAERS Safety Report 4608647-4 (Version None)
Quarter: 2005Q1

REPORT INFORMATION
  Report Type: 
  Country: None (occurrence: None)
  Receive Date: 20050315
  Receipt Date: 20050304
  Transmission Date: 20050727
  Serious: Yes (Other)
  Sender: FDA-Public Use
  Company Number: US-AMGEN-US119087

PATIENT
  Sex: Female
  Weight: 65.4 kg

DRUGS (2)
  1. ENBREL [Suspect]
     Indication: RHEUMATOID ARTHRITIS
  2. DIURETICS [Concomitant]

REACTIONS (3)
  - CARDIOMYOPATHY [None]
  - DILATATION ATRIAL [None]
  - DILATATION VENTRICULAR [None]
